FAERS Safety Report 7818200-7 (Version None)
Quarter: 2011Q4

REPORT INFORMATION
  Report Type: 
  Country: None (occurrence: None)
  Receive Date: 20111017
  Receipt Date: 20111013
  Transmission Date: 20120403
  Serious: Yes (Death, Hospitalization, Other)
  Sender: FDA-Public Use
  Company Number: PHHY2009JP43605

PATIENT
  Sex: Male
  Weight: 55 kg

DRUGS (12)
  1. OMEPRAZOLE [Concomitant]
     Dosage: 20 MG, UNK
     Route: 048
     Dates: start: 20080901, end: 20090401
  2. ACETAMINOPHEN [Concomitant]
     Dosage: 800 MG, UNK
     Route: 048
     Dates: start: 20080901, end: 20090401
  3. BESTATIN [Concomitant]
     Indication: MYELODYSPLASTIC SYNDROME
     Dosage: 30 MG, UNK
     Route: 048
     Dates: start: 20070901, end: 20090401
  4. FLUCONAZOLE [Concomitant]
     Dosage: 100 MG, UNK
     Route: 048
     Dates: start: 20080901, end: 20090401
  5. SULFAMETHOXAZOLE [Concomitant]
     Dosage: 1 DF, UNK
     Route: 048
     Dates: start: 20080901, end: 20090401
  6. MUCODYNE [Concomitant]
     Dosage: 1500 MG, UNK
     Route: 048
     Dates: start: 20080901, end: 20090401
  7. EXJADE [Suspect]
     Indication: MYELODYSPLASTIC SYNDROME
     Dosage: 500 MG, DAILY
     Route: 048
     Dates: start: 20081128, end: 20081204
  8. EXJADE [Suspect]
     Dosage: 750 MG, DAILY
     Route: 048
     Dates: start: 20081212, end: 20090131
  9. TORSEMIDE [Concomitant]
     Dosage: 2 MG, UNK
     Route: 048
     Dates: start: 20080901, end: 20090401
  10. LASIX [Concomitant]
     Dosage: 20 MG, UNK
     Route: 048
     Dates: start: 20080901, end: 20090401
  11. CORTRIL [Concomitant]
     Dosage: 20 MG, UNK
     Route: 048
     Dates: start: 20080901, end: 20090401
  12. EXJADE [Suspect]
     Indication: IRON OVERLOAD
     Dosage: 625 MG, DAILY
     Route: 048
     Dates: start: 20081205, end: 20081211

REACTIONS (10)
  - BLOOD LACTATE DEHYDROGENASE INCREASED [None]
  - BLOOD BILIRUBIN INCREASED [None]
  - PANCYTOPENIA [None]
  - NEOPLASM PROGRESSION [None]
  - BLOOD UREA INCREASED [None]
  - NEOPLASM MALIGNANT [None]
  - BLOOD ALKALINE PHOSPHATASE INCREASED [None]
  - PNEUMONIA [None]
  - SERUM FERRITIN INCREASED [None]
  - GASTROINTESTINAL DISORDER [None]
